FAERS Safety Report 5075422-9 (Version None)
Quarter: 2006Q3

REPORT INFORMATION
  Report Type: 
  Country: None (occurrence: None)
  Receive Date: 20060809
  Receipt Date: 20060731
  Transmission Date: 20061208
  Serious: Yes (Other)
  Sender: FDA-Public Use
  Company Number: PHFR2006GB02384

PATIENT
  Age: 42 Year
  Sex: Male

DRUGS (2)
  1. ELIDEL [Suspect]
     Indication: ECZEMA
     Dosage: UNK, UNK
     Route: 061
     Dates: start: 20040901, end: 20050301
  2. AZATHIOPRINE SODIUM [Concomitant]
     Indication: ECZEMA
     Dosage: 150MG/DAY
     Route: 048
     Dates: start: 20041001, end: 20050301

REACTIONS (1)
  - NON-HODGKIN'S LYMPHOMA [None]
